FAERS Safety Report 8887892 (Version 1)
Quarter: 2012Q4

REPORT INFORMATION
  Report Type: Spontaneous
  Country: US (occurrence: None)
  Receive Date: 20121101
  Receipt Date: 20121101
  Transmission Date: 20130627
  Serious: No
  Sender: FDA-Public Use
  Company Number: None

PATIENT
  Age: 54 Year
  Sex: Male
  Weight: 83.1 kg

DRUGS (1)
  1. AMOXICILLIN/CLAVULANATE POTASSIUM [Suspect]
     Indication: INFECTED BITES
     Dosage: 875/125 MG BID PO
     Route: 048
     Dates: start: 20120703, end: 20120713

REACTIONS (13)
  - Pulmonary eosinophilia [None]
  - Pain [None]
  - Headache [None]
  - Nausea [None]
  - Hypophagia [None]
  - Weight decreased [None]
  - Insomnia [None]
  - Upper-airway cough syndrome [None]
  - Night sweats [None]
  - Productive cough [None]
  - Increased upper airway secretion [None]
  - Arthralgia [None]
  - Vomiting [None]
